FAERS Safety Report 4568221-5 (Version None)
Quarter: 2005Q1

REPORT INFORMATION
  Report Type: 
  Country: None (occurrence: None)
  Receive Date: 20050131
  Receipt Date: 20050121
  Transmission Date: 20050727
  Serious: Yes (Other)
  Sender: FDA-Public Use
  Company Number: GXKR2005JP00462

PATIENT
  Age: 31 Year
  Sex: Female

DRUGS (9)
  1. RIFAMPICIN [Suspect]
     Dosage: 450 MG, ORAL
     Route: 048
     Dates: start: 20040106, end: 20040122
  2. ETHAMBUTOL HCL [Suspect]
     Indication: PULMONARY TUBERCULOSIS
     Dosage: 750 MG, ORAL
     Route: 048
     Dates: start: 20040106, end: 20040122
  3. ISONIAZID [Suspect]
     Indication: PULMONARY TUBERCULOSIS
     Dosage: 300 MG, ORAL
     Route: 048
     Dates: start: 20040106, end: 20040122
  4. PYRAZINAMIDE [Suspect]
     Indication: PULMONARY TUBERCULOSIS
     Dosage: 6.0, ORAL
     Route: 048
     Dates: start: 20040106, end: 20040122
  5. FLOMOX (CEFCAPENE PIVOXIL HYDROCHLORIDE) [Concomitant]
  6. CEFMETAZON (CEFMETAZOLE SODIUM) [Concomitant]
  7. UNASYN S (AMPICILLIN SODIUM, SULBACTAM SODIUM) [Concomitant]
  8. CLARITHROMYCIN [Concomitant]
  9. MUCODYNE (CARBOCISTEINE) [Concomitant]

REACTIONS (4)
  - BLOOD URIC ACID INCREASED [None]
  - LEUKOPENIA [None]
  - LIVER DISORDER [None]
  - NAUSEA [None]
